FAERS Safety Report 4860512-3 (Version None)
Quarter: 2005Q4

REPORT INFORMATION
  Report Type: 
  Country: None (occurrence: None)
  Receive Date: 20051216
  Receipt Date: 20051201
  Transmission Date: 20060501
  Serious: Yes (Hospitalization)
  Sender: FDA-Public Use
  Company Number: US200512000392

PATIENT
  Sex: Female

DRUGS (1)
  1. CYMBALTA [Suspect]

REACTIONS (4)
  - ATRIOVENTRICULAR BLOCK [None]
  - GLUCOSE URINE [None]
  - HYPERGLYCAEMIA [None]
  - RENAL FAILURE [None]
